FAERS Safety Report 8545055-8 (Version None)
Quarter: 2012Q3

REPORT INFORMATION
  Report Type: 
  Country: None (occurrence: None)
  Receive Date: 20120727
  Receipt Date: 20120723
  Transmission Date: 20120928
  Serious: Yes (Hospitalization, Other)
  Sender: FDA-Public Use
  Company Number: US-009507513-1207USA010092

PATIENT

DRUGS (8)
  1. AMARYL [Suspect]
     Route: 048
  2. CARDIZEM CD [Concomitant]
     Route: 048
  3. LASIX [Concomitant]
     Route: 048
  4. XARELTO [Suspect]
     Route: 048
  5. JANUVIA [Suspect]
     Route: 048
  6. AMIKACIN [Suspect]
     Route: 042
  7. ALLOPURINOL [Concomitant]
     Route: 048
  8. AVODART [Concomitant]
     Route: 048

REACTIONS (5)
  - RENAL FAILURE [None]
  - HYPERKALAEMIA [None]
  - HYPOGLYCAEMIA [None]
  - HAEMATURIA [None]
  - HEPATIC ENZYME INCREASED [None]
